FAERS Safety Report 23519539 (Version 1)
Quarter: 2024Q1

REPORT INFORMATION
  Report Type: Spontaneous
  Country: US (occurrence: US)
  Receive Date: 20240213
  Receipt Date: 20240213
  Transmission Date: 20240410
  Serious: No
  Sender: FDA-Public Use
  Company Number: US-SANOFI-01936018

PATIENT
  Age: 60 Year
  Sex: Male

DRUGS (2)
  1. RENVELA [Suspect]
     Active Substance: SEVELAMER CARBONATE
     Indication: Product used for unknown indication
     Dosage: 1600 MG
  2. RENVELA [Suspect]
     Active Substance: SEVELAMER CARBONATE
     Dosage: 800 MG

REACTIONS (1)
  - Incorrect dose administered [Unknown]
